FAERS Safety Report 9983246 (Version 1)
Quarter: 2014Q1

REPORT INFORMATION
  Report Type: Report from Study
  Country: US (occurrence: US)
  Receive Date: 20140307
  Receipt Date: 20140307
  Transmission Date: 20141002
  Serious: No
  Sender: FDA-Public Use
  Company Number: US-ABBVIE-13P-163-1181302-00

PATIENT
  Sex: Female
  Weight: 59.02 kg

DRUGS (5)
  1. HUMIRA [Suspect]
     Indication: PRODUCT USED FOR UNKNOWN INDICATION
     Route: 058
  2. LEVOTHYROXIN [Concomitant]
     Indication: PRODUCT USED FOR UNKNOWN INDICATION
  3. RESTASIS [Concomitant]
     Indication: PRODUCT USED FOR UNKNOWN INDICATION
  4. MULTIVITAMIN [Concomitant]
     Indication: PRODUCT USED FOR UNKNOWN INDICATION
  5. PROBIOTIC [Concomitant]
     Indication: PRODUCT USED FOR UNKNOWN INDICATION

REACTIONS (7)
  - Dry eye [Unknown]
  - Hot flush [Unknown]
  - Dry mouth [Unknown]
  - Unevaluable event [Unknown]
  - Tremor [Unknown]
  - Headache [Unknown]
  - Vomiting [Unknown]
